FAERS Safety Report 26101195 (Version 1)
Quarter: 2025Q4

REPORT INFORMATION
  Report Type: Spontaneous
  Country: CN (occurrence: CN)
  Receive Date: 20251128
  Receipt Date: 20251128
  Transmission Date: 20260117
  Serious: Yes (Hospitalization)
  Sender: ACCORD
  Company Number: CN-Accord-515197

PATIENT
  Age: 70 Year
  Sex: Male

DRUGS (24)
  1. OXALIPLATIN [Suspect]
     Active Substance: OXALIPLATIN
     Indication: Colorectal cancer
     Dosage: 8 CYCLES
     Dates: start: 20211222, end: 2022
  2. OMEPRAZOLE [Suspect]
     Active Substance: OMEPRAZOLE
     Indication: Product used for unknown indication
     Dosage: 8 TIMES
     Dates: start: 20211222, end: 2022
  3. BEVACIZUMAB [Concomitant]
     Active Substance: BEVACIZUMAB
     Indication: Colorectal cancer
     Dosage: 8 CYCLES
     Dates: start: 20211222, end: 2022
  4. FLUOROURACIL [Concomitant]
     Active Substance: FLUOROURACIL
     Indication: Colorectal cancer
     Dosage: 8 CYCLES
     Dates: start: 20211222, end: 2022
  5. LEUCOVORIN [Concomitant]
     Active Substance: LEUCOVORIN\LEUCOVORIN CALCIUM
     Indication: Colorectal cancer
     Dosage: 8 CYCLES
     Dates: start: 20211222, end: 2022
  6. GRANISETRON [Concomitant]
     Active Substance: GRANISETRON
     Dosage: 3 MG QD IV
     Dates: start: 20220603
  7. METHYLPREDNISOLONE [Concomitant]
     Active Substance: METHYLPREDNISOLONE
     Dosage: 40 MG ST IV
     Dates: start: 20220603
  8. VITAMIN B6 [Concomitant]
     Active Substance: PYRIDOXINE HYDROCHLORIDE
     Dosage: 0.2 G QD IV
     Dates: start: 20220603
  9. VITAMIN C [Concomitant]
     Active Substance: ASCORBIC ACID
     Dosage: 1 G QD IV
     Dates: start: 20220603
  10. OXALIPLATIN [Suspect]
     Active Substance: OXALIPLATIN
     Indication: Colorectal cancer
     Dosage: 9TH CYCLE- OXALIPLATIN (150 MG ST IV)
     Dates: start: 20220603, end: 2022
  11. OXALIPLATIN [Suspect]
     Active Substance: OXALIPLATIN
     Indication: Metastases to liver
     Dosage: 9TH CYCLE- OXALIPLATIN (150 MG ST IV)
     Dates: start: 20220603, end: 2022
  12. FLUOROURACIL [Concomitant]
     Active Substance: FLUOROURACIL
     Indication: Colorectal cancer
     Dosage: 9TH CYCLE- FLUOROURACIL INJECTION (0.75 G ST IV)
     Dates: start: 20220603, end: 20220604
  13. FLUOROURACIL [Concomitant]
     Active Substance: FLUOROURACIL
     Indication: Metastases to liver
     Dosage: 9TH CYCLE- FLUOROURACIL INJECTION (0.75 G ST IV + 4 G ST CIV46H)
     Dates: start: 20220603, end: 2022
  14. FLUOROURACIL [Concomitant]
     Active Substance: FLUOROURACIL
     Indication: Metastases to liver
     Dosage: 8 CYCLES
     Dates: start: 20211222, end: 2022
  15. LEUCOVORIN [Concomitant]
     Active Substance: LEUCOVORIN\LEUCOVORIN CALCIUM
     Indication: Colorectal cancer
     Dosage: 8 CYCLES
     Dates: start: 20211222, end: 2022
  16. LEUCOVORIN [Concomitant]
     Active Substance: LEUCOVORIN\LEUCOVORIN CALCIUM
     Indication: Metastases to liver
     Dosage: 9TH CYCLE- CALCIUM FOLINATE (700 MG ST IV)
     Dates: start: 20220603, end: 2022
  17. BEVACIZUMAB [Concomitant]
     Active Substance: BEVACIZUMAB
     Indication: Metastases to liver
     Dosage: 8 CYCLES
     Dates: start: 20211222, end: 2022
  18. BEVACIZUMAB [Concomitant]
     Active Substance: BEVACIZUMAB
     Indication: Colorectal cancer
     Dosage: 9TH CYCLE- 150 MG ST IV
     Dates: start: 20220604, end: 2022
  19. BEVACIZUMAB [Concomitant]
     Active Substance: BEVACIZUMAB
     Indication: Metastases to liver
     Dosage: 9TH CYCLE- 150 MG ST IV
     Dates: start: 20220604, end: 2022
  20. FLUOROURACIL [Concomitant]
     Active Substance: FLUOROURACIL
     Indication: Colorectal cancer
     Dosage: 9TH CYCLE- FLUOROURACIL INJECTION (0.75 G ST IV + 4 G ST CIV46H)
     Dates: start: 20220603, end: 2022
  21. OMEPRAZOLE [Suspect]
     Active Substance: OMEPRAZOLE
     Indication: Product used for unknown indication
     Dosage: 9TH INJECTION
     Dates: start: 20220603
  22. OXALIPLATIN [Suspect]
     Active Substance: OXALIPLATIN
     Indication: Metastases to liver
     Dosage: 9TH CYCLE- OXALIPLATIN (150 MG ST IV)
     Route: 042
     Dates: start: 20220603, end: 2022
  23. FLUOROURACIL [Concomitant]
     Active Substance: FLUOROURACIL
     Indication: Metastases to liver
     Dosage: 9TH CYCLE- FLUOROURACIL INJECTION (0.75 G ST IV)
     Dates: start: 20220603, end: 20220604
  24. LEUCOVORIN [Concomitant]
     Active Substance: LEUCOVORIN\LEUCOVORIN CALCIUM
     Indication: Metastases to liver
     Dosage: 9TH CYCLE- CALCIUM FOLINATE (700 MG ST IV)
     Route: 042
     Dates: start: 20220603, end: 2022

REACTIONS (3)
  - Insulin autoimmune syndrome [Recovering/Resolving]
  - Hypoglycaemia [Recovering/Resolving]
  - Mental status changes [Recovering/Resolving]

NARRATIVE: CASE EVENT DATE: 20220605
